FAERS Safety Report 22311737 (Version 20)
Quarter: 2025Q2

REPORT INFORMATION
  Report Type: Report from Study
  Country: US (occurrence: US)
  Receive Date: 20230512
  Receipt Date: 20250609
  Transmission Date: 20250717
  Serious: Yes (Hospitalization, Other)
  Sender: TAKEDA
  Company Number: US-TAKEDA-2023TUS017209

PATIENT
  Age: 68 Year
  Sex: Female
  Weight: 68 kg

DRUGS (57)
  1. HUMAN IMMUNOGLOBULIN G [Suspect]
     Active Substance: HUMAN IMMUNOGLOBULIN G
     Indication: Primary immunodeficiency syndrome
     Dosage: 8 GRAM, 1/WEEK
     Dates: start: 20230130
  2. HUMAN IMMUNOGLOBULIN G [Suspect]
     Active Substance: HUMAN IMMUNOGLOBULIN G
     Indication: Asthma
  3. MIEBO [Suspect]
     Active Substance: PERFLUOROHEXYLOCTANE
     Indication: Product used for unknown indication
  4. DIPHENHYDRAMINE [Concomitant]
     Active Substance: DIPHENHYDRAMINE
  5. DIPHENHYDRAMINE HYDROCHLORIDE [Concomitant]
     Active Substance: DIPHENHYDRAMINE HYDROCHLORIDE
  6. LEVSIN [Concomitant]
     Active Substance: HYOSCYAMINE SULFATE
  7. TIZANIDINE HYDROCHLORIDE [Concomitant]
     Active Substance: TIZANIDINE HYDROCHLORIDE
  8. HYOSCYAMINE SULFATE [Concomitant]
     Active Substance: HYOSCYAMINE SULFATE
  9. EPINEPHRINE [Concomitant]
     Active Substance: EPINEPHRINE
  10. PREMARIN [Concomitant]
     Active Substance: ESTROGENS, CONJUGATED
  11. EZETIMIBE [Concomitant]
     Active Substance: EZETIMIBE
  12. NYSTATIN [Concomitant]
     Active Substance: NYSTATIN
  13. DYMISTA [Concomitant]
     Active Substance: AZELASTINE HYDROCHLORIDE\FLUTICASONE PROPIONATE
  14. Tension Headache Relievers [Concomitant]
  15. VAGIFEM [Concomitant]
     Active Substance: ESTRADIOL
  16. KETOROLAC TROMETHAMINE [Concomitant]
     Active Substance: KETOROLAC TROMETHAMINE
  17. PEPTO-BISMOL [Concomitant]
     Active Substance: BISMUTH SUBSALICYLATE
  18. ACETAMINOPHEN [Concomitant]
     Active Substance: ACETAMINOPHEN
  19. SINGULAIR [Concomitant]
     Active Substance: MONTELUKAST SODIUM
  20. PRAVASTATIN SODIUM [Concomitant]
     Active Substance: PRAVASTATIN SODIUM
  21. STOOL SOFTENER (DOCUSATE) [Concomitant]
     Active Substance: DOCUSATE
  22. MIRALAX [Concomitant]
     Active Substance: POLYETHYLENE GLYCOL 3350
  23. Acid reducer [Concomitant]
  24. ZOFRAN [Concomitant]
     Active Substance: ONDANSETRON HYDROCHLORIDE
  25. DILTIAZEM HYDROCHLORIDE [Concomitant]
     Active Substance: DILTIAZEM HYDROCHLORIDE
  26. ALBUTEROL SULFATE [Concomitant]
     Active Substance: ALBUTEROL SULFATE
  27. ASPIRIN [Concomitant]
     Active Substance: ASPIRIN
  28. FASENRA [Concomitant]
     Active Substance: BENRALIZUMAB
  29. DULOXETINE HYDROCHLORIDE [Concomitant]
     Active Substance: DULOXETINE HYDROCHLORIDE
  30. FAMOTIDINE [Concomitant]
     Active Substance: FAMOTIDINE
  31. XOPENEX [Concomitant]
     Active Substance: LEVALBUTEROL HYDROCHLORIDE
  32. BUSPIRONE HCL [Concomitant]
     Active Substance: BUSPIRONE HYDROCHLORIDE
  33. FOLIC ACID [Concomitant]
     Active Substance: FOLIC ACID
  34. LASIX [Concomitant]
     Active Substance: FUROSEMIDE
  35. EXCEDRIN EXTRA STRENGTH [Concomitant]
     Active Substance: ACETAMINOPHEN\ASPIRIN\CAFFEINE
  36. VITAMIN C [Concomitant]
     Active Substance: ASCORBIC ACID
  37. PROAIR HFA [Concomitant]
     Active Substance: ALBUTEROL SULFATE
  38. PROTONIX [Concomitant]
     Active Substance: PANTOPRAZOLE SODIUM
  39. CELECOXIB [Concomitant]
     Active Substance: CELECOXIB
  40. SUCRALFATE [Concomitant]
     Active Substance: SUCRALFATE
  41. BREZTRI [Concomitant]
     Active Substance: BUDESONIDE\FORMOTEROL\GLYCOPYRROLATE
  42. DEXLANSOPRAZOLE [Concomitant]
     Active Substance: DEXLANSOPRAZOLE
  43. Citracal + D3 [Concomitant]
  44. PANTOPRAZOLE SODIUM [Concomitant]
     Active Substance: PANTOPRAZOLE SODIUM
  45. TIZANIDINE [Concomitant]
     Active Substance: TIZANIDINE
  46. MONTELUKAST SODIUM [Concomitant]
     Active Substance: MONTELUKAST SODIUM
  47. ASCORBIC ACID\IRON [Concomitant]
     Active Substance: ASCORBIC ACID\IRON
  48. ZETIA [Concomitant]
     Active Substance: EZETIMIBE
  49. SALSALATE [Concomitant]
     Active Substance: SALSALATE
  50. AZELASTINE HYDROCHLORIDE [Concomitant]
     Active Substance: AZELASTINE HYDROCHLORIDE
  51. CHLORPHENIRAMINE MALEATE [Concomitant]
     Active Substance: CHLORPHENIRAMINE MALEATE
  52. MONTELUKAST [Concomitant]
     Active Substance: MONTELUKAST
  53. LIDOCAINE [Concomitant]
     Active Substance: LIDOCAINE
  54. DILTIAZEM [Concomitant]
     Active Substance: DILTIAZEM
  55. BENTYL [Concomitant]
     Active Substance: DICYCLOMINE HYDROCHLORIDE
  56. OLOPATADINE HYDROCHLORIDE [Concomitant]
     Active Substance: OLOPATADINE HYDROCHLORIDE
  57. ONDANSETRON HYDROCHLORIDE [Concomitant]
     Active Substance: ONDANSETRON HYDROCHLORIDE

REACTIONS (26)
  - Pseudomonas infection [Unknown]
  - Asthma [Unknown]
  - Dyspnoea [Unknown]
  - Weight decreased [Unknown]
  - Bacterial infection [Unknown]
  - Weight increased [Unknown]
  - Drug hypersensitivity [Unknown]
  - Hypersomnia [Unknown]
  - Seasonal allergy [Unknown]
  - Allergic sinusitis [Unknown]
  - Sinusitis bacterial [Not Recovered/Not Resolved]
  - Fungal infection [Unknown]
  - Blood pressure abnormal [Unknown]
  - Insurance issue [Unknown]
  - Product use issue [Unknown]
  - Sciatica [Unknown]
  - Sinusitis [Unknown]
  - Feeling abnormal [Unknown]
  - Abdominal distension [Unknown]
  - Malaise [Unknown]
  - Infusion site bruising [Unknown]
  - Infusion site erythema [Unknown]
  - Infusion site swelling [Unknown]
  - Infusion site pain [Unknown]
  - Multiple allergies [Unknown]
  - Sedation [Unknown]

NARRATIVE: CASE EVENT DATE: 20231101
